FAERS Safety Report 18402476 (Version 1)
Quarter: 2020Q4

REPORT INFORMATION
  Report Type: Spontaneous
  Country: GB (occurrence: GB)
  Receive Date: 20201020
  Receipt Date: 20201020
  Transmission Date: 20210114
  Serious: Yes (Other)
  Sender: FDA-Public Use
  Company Number: GB-AMGEN-GBRSP2020167074

PATIENT
  Age: 80 Year
  Sex: Female
  Weight: 50.7 kg

DRUGS (1)
  1. PROLIA [Suspect]
     Active Substance: DENOSUMAB
     Indication: OSTEOPOROSIS
     Dosage: 60 MILLIGRAM PER MILLILITRE
     Route: 058
     Dates: start: 20200327

REACTIONS (2)
  - Oesophagitis chemical [Recovering/Resolving]
  - Salivary hypersecretion [Unknown]

NARRATIVE: CASE EVENT DATE: 20200404
